FAERS Safety Report 16993550 (Version 3)
Quarter: 2019Q4

REPORT INFORMATION
  Report Type: Report from Study
  Country: AR (occurrence: AR)
  Receive Date: 20191105
  Receipt Date: 20191120
  Transmission Date: 20200122
  Serious: Yes (Death, Hospitalization)
  Sender: FDA-Public Use
  Company Number: AR-PFIZER INC-2019469402

PATIENT
  Sex: Female
  Weight: 44 kg

DRUGS (8)
  1. METHOTREXATE. [Concomitant]
     Active Substance: METHOTREXATE
     Indication: RHEUMATOID ARTHRITIS
     Dosage: 20 MG, WEEKLY
     Route: 048
     Dates: start: 20121123, end: 20191026
  2. DICLOFENAC [Concomitant]
     Active Substance: DICLOFENAC
     Indication: RHEUMATOID ARTHRITIS
     Dosage: 75 MG, 2X/DAY
     Route: 048
     Dates: start: 20130716, end: 20191026
  3. OMEPRAZOL [Concomitant]
     Active Substance: OMEPRAZOLE
     Indication: PROPHYLAXIS
     Dosage: 20 MG, DAILY
     Route: 048
     Dates: start: 20140220, end: 20191026
  4. DANANTIZOL [Concomitant]
     Indication: HYPERTHYROIDISM
     Dosage: 20 MG, DAILY
     Route: 048
     Dates: start: 201607, end: 20191026
  5. ARTIFICIAL TEARS [HYPROMELLOSE] [Concomitant]
     Indication: SJOGREN^S SYNDROME
     Dosage: 2 DROPS DAILY
     Route: 061
     Dates: start: 201603, end: 20191026
  6. FOLIC ACID. [Concomitant]
     Active Substance: FOLIC ACID
     Indication: RHEUMATOID ARTHRITIS
     Dosage: 5 MG, WEEKLY
     Route: 048
     Dates: start: 20070220, end: 20191026
  7. MEPREDNISONE [Concomitant]
     Active Substance: MEPREDNISONE
     Indication: RHEUMATOID ARTHRITIS
     Dosage: 6 MG, DAILY
     Route: 048
     Dates: start: 20150302, end: 20191026
  8. TOFACITINIB CITRATE [Suspect]
     Active Substance: TOFACITINIB CITRATE
     Indication: RHEUMATOID ARTHRITIS
     Dosage: 20 MG, 2X/DAY
     Route: 048
     Dates: start: 20160815, end: 20180516

REACTIONS (2)
  - Adenocarcinoma of colon [Fatal]
  - Neoplasm progression [Fatal]
